FAERS Safety Report 21625066 (Version 3)
Quarter: 2023Q2

REPORT INFORMATION
  Report Type: Report from Study
  Country: CA (occurrence: CA)
  Receive Date: 20221122
  Receipt Date: 20230407
  Transmission Date: 20230721
  Serious: Yes (Other)
  Sender: FDA-Public Use
  Company Number: CA-002147023-NVSC2019CA074954

PATIENT
  Age: 51 Year
  Sex: Female
  Weight: 77 kg

DRUGS (2)
  1. COSENTYX [Suspect]
     Active Substance: SECUKINUMAB
     Indication: Psoriasis
     Dosage: 300 MG, QMO
     Route: 058
     Dates: start: 20191024, end: 20200106
  2. BETADERM [Concomitant]
     Active Substance: BETAMETHASONE VALERATE
     Indication: Psoriasis
     Dosage: UNK UNK, BID, (TO AFFECTED AREA)
     Route: 065
     Dates: start: 20190914

REACTIONS (2)
  - Pulmonary congestion [Recovered/Resolved]
  - Cough [Recovered/Resolved]

NARRATIVE: CASE EVENT DATE: 20191126
